FAERS Safety Report 4637668-0 (Version None)
Quarter: 2005Q2

REPORT INFORMATION
  Report Type: 
  Country: None (occurrence: None)
  Receive Date: 20050418
  Receipt Date: 20050309
  Transmission Date: 20051028
  Serious: Yes (Death, Disabling)
  Sender: FDA-Public Use
  Company Number: PHHO2005JP04158

PATIENT
  Age: 28 Year
  Sex: Female
  Weight: 45 kg

DRUGS (23)
  1. CEFOPERAZIN [Concomitant]
  2. FUNGUARD [Concomitant]
  3. FIRSTCIN [Concomitant]
  4. DALACIN [Concomitant]
  5. DENOSINE [Concomitant]
  6. TARGOCID [Concomitant]
  7. VENOGLOBLIN-IH [Concomitant]
  8. SANDIMMUNE [Suspect]
     Indication: LUNG TRANSPLANT
     Dosage: 12 - 60 MG
     Dates: start: 20041006, end: 20041008
  9. SANDIMMUNE [Suspect]
     Dosage: 24 - 60 MG
     Dates: start: 20041010, end: 20041021
  10. SANDIMMUNE [Suspect]
     Dosage: 24 - 84 MG
     Dates: start: 20041021, end: 20041105
  11. SIMULECT [Suspect]
     Indication: LUNG TRANSPLANT
     Dosage: 20 MG, ONCE/SINGLE
     Route: 042
     Dates: start: 20041005, end: 20041005
  12. SIMULECT [Suspect]
     Dosage: 20 MG, ONCE/SINGLE
     Route: 042
     Dates: start: 20041010, end: 20041010
  13. CELLCEPT [Suspect]
     Indication: LUNG TRANSPLANT
     Dosage: 1 G/DAY
     Route: 048
     Dates: start: 20041006, end: 20041104
  14. METHYLPREDNISOLONE ACETATE [Suspect]
     Indication: LUNG TRANSPLANT
     Dosage: 2 G/DAY
     Route: 042
     Dates: start: 20041005, end: 20041005
  15. METHYLPREDNISOLONE ACETATE [Suspect]
     Dosage: 50 MG/DAY
     Route: 042
     Dates: start: 20041007, end: 20041007
  16. METHYLPREDNISOLONE ACETATE [Suspect]
     Dosage: 1 G/DAY
     Route: 042
     Dates: start: 20041008, end: 20041008
  17. METHYLPREDNISOLONE ACETATE [Suspect]
     Dosage: 125 MG/DAY
     Route: 042
     Dates: start: 20041009, end: 20041009
  18. METHYLPREDNISOLONE ACETATE [Suspect]
     Dosage: 25 MG/DAY
     Route: 042
     Dates: start: 20041010
  19. METHYLPREDNISOLONE ACETATE [Suspect]
     Dosage: 500 MG/DAY
     Route: 042
     Dates: start: 20041016, end: 20041016
  20. METHYLPREDNISOLONE ACETATE [Suspect]
     Dosage: 1 G/DAY
     Route: 042
     Dates: start: 20041023, end: 20041025
  21. IMMUNE GLOBULIN INTRAVENOUS (HUMAN) [Concomitant]
  22. UNASYN [Concomitant]
  23. BACTRAMIN [Concomitant]

REACTIONS (5)
  - CANDIDA SEPSIS [None]
  - CYTOMEGALOVIRUS VIRAEMIA [None]
  - HYPERBILIRUBINAEMIA [None]
  - RENAL DISORDER [None]
  - RESPIRATORY FAILURE [None]
